FAERS Safety Report 19012729 (Version 1)
Quarter: 2021Q1

REPORT INFORMATION
  Report Type: Spontaneous
  Country: US (occurrence: US)
  Receive Date: 20210315
  Receipt Date: 20210315
  Transmission Date: 20210420
  Serious: Yes (Hospitalization)
  Sender: FDA-Public Use
  Company Number: None

PATIENT
  Age: 87 Year
  Sex: Male
  Weight: 85 kg

DRUGS (1)
  1. METFORMIN (METFORMIN HCL 500MG TAB) [Suspect]
     Active Substance: METFORMIN HYDROCHLORIDE
     Indication: DIABETES MELLITUS
     Route: 048
     Dates: start: 20201002, end: 20201216

REACTIONS (8)
  - Blood lactic acid increased [None]
  - Sepsis [None]
  - Dyspnoea [None]
  - COVID-19 [None]
  - Atrial fibrillation [None]
  - Pneumonia bacterial [None]
  - Leukocytosis [None]
  - Respiratory failure [None]

NARRATIVE: CASE EVENT DATE: 20201230
